FAERS Safety Report 15225745 (Version 1)
Quarter: 2018Q3

REPORT INFORMATION
  Report Type: Report from Study
  Country: CA (occurrence: CA)
  Receive Date: 20180801
  Receipt Date: 20180801
  Transmission Date: 20181010
  Serious: Yes (Other)
  Sender: FDA-Public Use
  Company Number: CA-BIOGEN-2018BI00613992

PATIENT
  Age: 48 Year
  Sex: Female

DRUGS (5)
  1. TECFIDERA [Suspect]
     Active Substance: DIMETHYL FUMARATE
     Indication: MULTIPLE SCLEROSIS
     Dosage: STARTER TITRATION DOSE AS PER NEUROLOGIST
     Route: 048
     Dates: start: 20131230, end: 20140106
  2. TECFIDERA [Suspect]
     Active Substance: DIMETHYL FUMARATE
     Dosage: STARTER TITRATION DOSE AS PER NEUROLOGIST
     Route: 048
     Dates: start: 20140113, end: 20140119
  3. TECFIDERA [Suspect]
     Active Substance: DIMETHYL FUMARATE
     Dosage: STARTER TITRATION DOSE AS PER NEUROLOGIST
     Route: 048
     Dates: start: 20140113, end: 20140119
  4. TECFIDERA [Suspect]
     Active Substance: DIMETHYL FUMARATE
     Dosage: MAINTENANCE DOSE
     Route: 048
     Dates: start: 20140120
  5. TECFIDERA [Suspect]
     Active Substance: DIMETHYL FUMARATE
     Dosage: STARTER TITRATION DOSE AS PER NEUROLOGIST
     Route: 048
     Dates: start: 20140106, end: 20140112

REACTIONS (4)
  - Osteomyelitis [Not Recovered/Not Resolved]
  - Tooth infection [Unknown]
  - Lip infection [Not Recovered/Not Resolved]
  - Underdose [Recovered/Resolved]

NARRATIVE: CASE EVENT DATE: 20131230
